FAERS Safety Report 20079350 (Version 1)
Quarter: 2021Q4

REPORT INFORMATION
  Report Type: Spontaneous
  Country: US (occurrence: US)
  Receive Date: 20211117
  Receipt Date: 20211117
  Transmission Date: 20220303
  Serious: No
  Sender: FDA-Public Use
  Company Number: US-AUROBINDO-AUR-APL-2021-009865

PATIENT
  Age: 90 Year
  Sex: Female
  Weight: 145 kg

DRUGS (5)
  1. PANTOPRAZOLE SODIUM [Suspect]
     Active Substance: PANTOPRAZOLE SODIUM
     Indication: Gastrooesophageal reflux disease
     Dosage: 2 DOSAGE FORM, 1 PILL AT BEFORE BREAKFAST AND 1 PILL AT BEFORE DINNER
     Route: 048
     Dates: start: 20210130
  2. PANTOPRAZOLE SODIUM [Suspect]
     Active Substance: PANTOPRAZOLE SODIUM
     Indication: Oesophagitis
     Dosage: 2 DOSAGE FORM, 1 PILL AT BEFORE BREAKFAST AND 1 PILL AT BEFORE DINNER
     Route: 048
     Dates: start: 20210302
  3. TYLENOL [Concomitant]
     Active Substance: ACETAMINOPHEN
     Indication: Product used for unknown indication
     Dosage: 650 3 TIMES A DAY
     Route: 065
  4. VITAMIN D [Concomitant]
     Active Substance: VITAMIN D NOS
     Indication: Product used for unknown indication
     Dosage: UNK
     Route: 065
  5. RAMIPRIL [Concomitant]
     Active Substance: RAMIPRIL
     Indication: Hypertension
     Dosage: UNK
     Route: 065

REACTIONS (5)
  - Feeling abnormal [Not Recovered/Not Resolved]
  - Dizziness [Not Recovered/Not Resolved]
  - Product outer packaging issue [Unknown]
  - Product packaging quantity issue [Unknown]
  - Product colour issue [Unknown]

NARRATIVE: CASE EVENT DATE: 20210302
